FAERS Safety Report 16444897 (Version 1)
Quarter: 2019Q2

REPORT INFORMATION
  Report Type: Spontaneous
  Country: US (occurrence: US)
  Receive Date: 20190618
  Receipt Date: 20190618
  Transmission Date: 20190711
  Serious: No
  Sender: FDA-Public Use
  Company Number: US-TEVA-2019-US-1065728

PATIENT
  Age: 55 Year
  Sex: Female

DRUGS (1)
  1. AJOVY [Suspect]
     Active Substance: FREMANEZUMAB-VFRM
     Route: 065

REACTIONS (10)
  - Asthenia [Unknown]
  - Restlessness [Unknown]
  - Palpitations [Unknown]
  - Injection site rash [Unknown]
  - Agitation [Unknown]
  - Weight increased [Unknown]
  - Hot flush [Unknown]
  - Feeling abnormal [Unknown]
  - Abdominal distension [Unknown]
  - Musculoskeletal stiffness [Unknown]
